FAERS Safety Report 4701177-0 (Version None)
Quarter: 2005Q2

REPORT INFORMATION
  Report Type: 
  Country: None (occurrence: None)
  Receive Date: 20050628
  Receipt Date: 20050617
  Transmission Date: 20051028
  Serious: Yes (Other)
  Sender: FDA-Public Use
  Company Number: US-JNJFOC-20050506099

PATIENT
  Sex: Female
  Weight: 102.06 kg

DRUGS (3)
  1. TOPAMAX [Suspect]
     Route: 065
  2. TOPAMAX [Suspect]
     Indication: MIGRAINE
     Dosage: DOSE UNSPECIFIED
     Route: 065
  3. TOPAMAX [Suspect]
     Route: 065

REACTIONS (8)
  - DYSARTHRIA [None]
  - HYPOKINESIA [None]
  - LOSS OF CONSCIOUSNESS [None]
  - MEMORY IMPAIRMENT [None]
  - MIGRAINE [None]
  - SPEECH DISORDER [None]
  - TINNITUS [None]
  - WEIGHT DECREASED [None]
